FAERS Safety Report 22166302 (Version 1)
Quarter: 2023Q2

REPORT INFORMATION
  Report Type: Spontaneous
  Country: BR (occurrence: BR)
  Receive Date: 20230403
  Receipt Date: 20230403
  Transmission Date: 20230722
  Serious: Yes (Other)
  Sender: FDA-Public Use
  Company Number: BR-PFIZER INC-202300137869

PATIENT
  Age: 79 Year
  Sex: Male

DRUGS (1)
  1. CAVERJECT [Suspect]
     Active Substance: ALPROSTADIL
     Dosage: UNK

REACTIONS (8)
  - Genital paraesthesia [Unknown]
  - Penile burning sensation [Unknown]
  - Eye operation [Unknown]
  - Varicose vein [Unknown]
  - Paraesthesia [Unknown]
  - Feeling cold [Unknown]
  - Application site pain [Unknown]
  - Discomfort [Unknown]
